FAERS Safety Report 8198141-9 (Version None)
Quarter: 2012Q1

REPORT INFORMATION
  Report Type: 
  Country: None (occurrence: None)
  Receive Date: 20120309
  Receipt Date: 20111129
  Transmission Date: 20120608
  Serious: No
  Sender: FDA-Public Use
  Company Number: US-AMGEN-USASP2011063193

PATIENT
  Age: 57 Year
  Sex: Female

DRUGS (6)
  1. CLARINEX [Concomitant]
     Dosage: 1 MG, QD
  2. CLONIDINE [Concomitant]
     Dosage: 1 MG, QD
  3. POTASSIUM [Concomitant]
     Dosage: 1 MEQ, QD
  4. PROLIA [Suspect]
     Indication: OSTEOPOROSIS POSTMENOPAUSAL
     Dosage: 60 MG, Q6MO
     Dates: start: 20111102
  5. ATENOLOL [Concomitant]
     Dosage: 1 MG, QD
  6. PROTONIX [Concomitant]
     Dosage: 1 MG, QD

REACTIONS (5)
  - ECZEMA [None]
  - PLATELET COUNT INCREASED [None]
  - DYSPNOEA [None]
  - BLOOD GLUCOSE INCREASED [None]
  - PRURITUS [None]
